FAERS Safety Report 5914957-0 (Version None)
Quarter: 2008Q4

REPORT INFORMATION
  Report Type: 
  Country: None (occurrence: None)
  Receive Date: 20081008
  Receipt Date: 20081002
  Transmission Date: 20090506
  Serious: Yes (Life-Threatening, Hospitalization, Other)
  Sender: FDA-Public Use
  Company Number: CLOF-1000290

PATIENT
  Age: 9 Year
  Sex: Male
  Weight: 44 kg

DRUGS (9)
  1. CLOLAR [Suspect]
     Indication: ACUTE MYELOID LEUKAEMIA
     Dosage: 73 MG, ONCE, INTRAVENOUS; 36.5 MG, QD, INTRAVENOUS
     Route: 042
     Dates: start: 20080909, end: 20080909
  2. CLOLAR [Suspect]
     Indication: ACUTE MYELOID LEUKAEMIA
     Dosage: 73 MG, ONCE, INTRAVENOUS; 36.5 MG, QD, INTRAVENOUS
     Route: 042
     Dates: start: 20080917, end: 20080918
  3. CYTARABINE [Suspect]
     Indication: ACUTE MYELOID LEUKAEMIA
     Dosage: 1 G/M2, QDX3, INTRAVENOUS
     Route: 042
     Dates: start: 20080917, end: 20080919
  4. METHYLPREDNISOLONE 16MG TAB [Concomitant]
  5. ALLOPURINOL [Concomitant]
  6. CEFEPIME [Concomitant]
  7. PERIDEX (CHLORHEXIDINE GLUCONATE) [Concomitant]
  8. MORPHINE [Concomitant]
  9. ACETAMINOPHEN [Concomitant]

REACTIONS (25)
  - ALANINE AMINOTRANSFERASE INCREASED [None]
  - ASPARTATE AMINOTRANSFERASE INCREASED [None]
  - BILIRUBIN CONJUGATED INCREASED [None]
  - BLOOD ALKALINE PHOSPHATASE INCREASED [None]
  - BLOOD BILIRUBIN INCREASED [None]
  - CAECITIS [None]
  - CARDIAC FAILURE [None]
  - COAGULOPATHY [None]
  - CONJUNCTIVAL HAEMORRHAGE [None]
  - CONTUSION [None]
  - CYSTITIS HAEMORRHAGIC [None]
  - HAEMODIALYSIS [None]
  - HAEMORRHAGE [None]
  - HYPOTENSION [None]
  - MULTI-ORGAN FAILURE [None]
  - OPTIC NERVE SHEATH HAEMORRHAGE [None]
  - PAIN [None]
  - PRURITUS [None]
  - RENAL FAILURE ACUTE [None]
  - RESPIRATORY FAILURE [None]
  - RETINAL HAEMORRHAGE [None]
  - SYSTEMIC INFLAMMATORY RESPONSE SYNDROME [None]
  - TRANSAMINASES INCREASED [None]
  - TUMOUR LYSIS SYNDROME [None]
  - WOUND SECRETION [None]
